FAERS Safety Report 5694287-5 (Version None)
Quarter: 2008Q2

REPORT INFORMATION
  Report Type: 
  Country: None (occurrence: None)
  Receive Date: 20080402
  Receipt Date: 20080328
  Transmission Date: 20081010
  Serious: Yes (Death, Other)
  Sender: FDA-Public Use
  Company Number: 066-21880-08031850

PATIENT
  Sex: Male

DRUGS (5)
  1. REVLIMID [Suspect]
     Indication: MULTIPLE MYELOMA
     Dosage: 25 MG, EVERY OTHER DAY, ORAL
     Route: 048
     Dates: start: 20070425
  2. DEXAMETHASONE TAB [Concomitant]
  3. SALOSPIRA (ACETYLSALICYLIC ACID) [Concomitant]
  4. ANTIHYPERTENSIVE TREATMENT (ANTIHYPERTENSIVES) [Concomitant]
  5. ZOMETA [Concomitant]

REACTIONS (2)
  - AKINESIA [None]
  - CEREBRAL INFARCTION [None]
